FAERS Safety Report 18640152 (Version 1)
Quarter: 2020Q4

REPORT INFORMATION
  Report Type: Spontaneous
  Country: US (occurrence: US)
  Receive Date: 20201220
  Receipt Date: 20201220
  Transmission Date: 20210114
  Serious: Yes (Hospitalization, Other)
  Sender: FDA-Public Use
  Company Number: US-BLUEPRINT MEDICINES CORPORATION-SP-US-2020-001352

PATIENT
  Sex: Female

DRUGS (1)
  1. GAVRETO [Suspect]
     Active Substance: PRALSETINIB
     Indication: LUNG NEOPLASM MALIGNANT
     Route: 048
     Dates: start: 20201125

REACTIONS (11)
  - Fall [Unknown]
  - Hypersomnia [Unknown]
  - Product dose omission issue [Unknown]
  - Haemorrhage [Unknown]
  - Loss of consciousness [Unknown]
  - Laboratory test abnormal [Unknown]
  - Contusion [Unknown]
  - Illness [Unknown]
  - Aspiration [Unknown]
  - Rib fracture [Unknown]
  - Lethargy [Unknown]
